FAERS Safety Report 7097311-0 (Version None)
Quarter: 2010Q4

REPORT INFORMATION
  Report Type: 
  Country: None (occurrence: None)
  Receive Date: 20101111
  Receipt Date: 20100301
  Transmission Date: 20110411
  Serious: No
  Sender: FDA-Public Use
  Company Number: US-KINGPHARMUSA00001-K201000239

PATIENT
  Sex: Male

DRUGS (1)
  1. LEVOXYL [Suspect]
     Indication: THYROID DISORDER
     Dosage: UNK
     Dates: start: 20090101

REACTIONS (2)
  - DIZZINESS [None]
  - DRUG INEFFECTIVE [None]
